FAERS Safety Report 8815510 (Version 1)
Quarter: 2012Q4

REPORT INFORMATION
  Report Type: Report from Study
  Country: NL (occurrence: NL)
  Receive Date: 20120928
  Receipt Date: 20120928
  Transmission Date: 20130627
  Serious: Yes (Life-Threatening, Hospitalization)
  Sender: FDA-Public Use
  Company Number: NL-JNJFOC-20120911137

PATIENT
  Age: 66 Year
  Sex: Female
  Weight: 64.8 kg

DRUGS (7)
  1. INFLIXIMAB, RECOMBINANT [Suspect]
     Indication: RHEUMATOID ARTHRITIS
     Route: 042
     Dates: start: 20090410
  2. INFLIXIMAB, RECOMBINANT [Suspect]
     Indication: RHEUMATOID ARTHRITIS
     Route: 042
     Dates: start: 20021009, end: 20030326
  3. METHOTREXATE [Suspect]
     Indication: RHEUMATOID ARTHRITIS
  4. ACTIVELLE [Suspect]
     Indication: OESTROGEN DEFICIENCY
  5. ACTIVELLE [Suspect]
     Indication: OESTROGEN DEFICIENCY
  6. CELEBREX [Concomitant]
     Indication: PAIN
  7. CALCICHEW D3 [Concomitant]
     Indication: OSTEOPOROSIS PROPHYLAXIS

REACTIONS (1)
  - Invasive ductal breast carcinoma [Unknown]
